FAERS Safety Report 20207652 (Version 4)
Quarter: 2022Q1

REPORT INFORMATION
  Report Type: Spontaneous
  Country: US (occurrence: US)
  Receive Date: 20211220
  Receipt Date: 20220203
  Transmission Date: 20220423
  Serious: Yes (Hospitalization)
  Sender: FDA-Public Use
  Company Number: US-KARYOPHARM-2021KPT001531

PATIENT

DRUGS (10)
  1. XPOVIO [Suspect]
     Active Substance: SELINEXOR
     Indication: Plasma cell myeloma
     Dosage: 40 MG, 2X/WEEK
     Route: 048
     Dates: start: 20211127, end: 202112
  2. XPOVIO [Suspect]
     Active Substance: SELINEXOR
     Dosage: 80 MG, 2X/WEEK
     Route: 048
     Dates: start: 202112, end: 202112
  3. XPOVIO [Suspect]
     Active Substance: SELINEXOR
     Dosage: 80 MG, WEEKLY
     Route: 048
     Dates: start: 202112, end: 20211228
  4. CALCITRIOL [Concomitant]
     Active Substance: CALCITRIOL
  5. COLCHICINE [Concomitant]
     Active Substance: COLCHICINE
  6. DEXAMETHASONE [Concomitant]
     Active Substance: DEXAMETHASONE
  7. LETROZOLE [Concomitant]
     Active Substance: LETROZOLE
  8. OLANZAPINE [Concomitant]
     Active Substance: OLANZAPINE
  9. ZOFRAN [Concomitant]
     Active Substance: ONDANSETRON HYDROCHLORIDE
  10. FLUTICASONE [Concomitant]
     Active Substance: FLUTICASONE

REACTIONS (7)
  - Headache [Recovered/Resolved]
  - Epistaxis [Recovered/Resolved]
  - Vision blurred [Recovered/Resolved]
  - Somnolence [Unknown]
  - Weight decreased [Unknown]
  - Nausea [Unknown]
  - Dehydration [Recovered/Resolved]

NARRATIVE: CASE EVENT DATE: 20211101
